FAERS Safety Report 12858886 (Version 1)
Quarter: 2016Q4

REPORT INFORMATION
  Report Type: Spontaneous
  Country: US (occurrence: US)
  Receive Date: 20161018
  Receipt Date: 20161018
  Transmission Date: 20170207
  Serious: No
  Sender: FDA-Public Use
  Company Number: US-NOVOPROD-512546

PATIENT
  Sex: Male

DRUGS (1)
  1. TRESIBA [Suspect]
     Active Substance: INSULIN DEGLUDEC
     Indication: PRODUCT USED FOR UNKNOWN INDICATION
     Dosage: 8.5 U AM AND 10.5 U PM
     Route: 058

REACTIONS (4)
  - Device use error [Unknown]
  - Dawn phenomenon [Recovered/Resolved]
  - Blood glucose increased [Unknown]
  - Off label use [Unknown]
